FAERS Safety Report 8173653-2 (Version None)
Quarter: 2012Q1

REPORT INFORMATION
  Report Type: 
  Country: None (occurrence: None)
  Receive Date: 20120223
  Receipt Date: 20120208
  Transmission Date: 20120608
  Serious: Yes (Hospitalization)
  Sender: FDA-Public Use
  Company Number: 2012S1000179

PATIENT
  Age: 66 Year
  Sex: Female

DRUGS (5)
  1. LIVAZO (PITAVASTATIN) [Suspect]
     Dosage: 1 MG;1X;PO
     Route: 048
     Dates: start: 20111214, end: 20111214
  2. PROPRAFENONE [Concomitant]
  3. HYDROCHLORIDE [Concomitant]
  4. VALSARTAN [Concomitant]
  5. HYDROCHLOROTHIAZIDE [Concomitant]

REACTIONS (1)
  - HYPERTENSIVE CRISIS [None]
